FAERS Safety Report 7989216-5 (Version None)
Quarter: 2011Q4

REPORT INFORMATION
  Report Type: 
  Country: None (occurrence: None)
  Receive Date: 20111216
  Receipt Date: 20111216
  Transmission Date: 20120403
  Serious: Yes (Hospitalization)
  Sender: FDA-Public Use
  Company Number: None

PATIENT
  Sex: Female
  Weight: 88.4514 kg

DRUGS (1)
  1. PURELL NOT AVAIL OR GENERIC 68% ETHANOL SANITIZER [Suspect]
     Dosage: USE DAILY 3 5 TIMES CLEANS HANDS AT LEAST
     Dates: start: 20070101, end: 20110101

REACTIONS (4)
  - PNEUMONIA [None]
  - PATHOGEN RESISTANCE [None]
  - BRONCHITIS [None]
  - MASTOIDITIS [None]
